FAERS Safety Report 17489663 (Version 1)
Quarter: 2020Q1

REPORT INFORMATION
  Report Type: Report from Study
  Country: NL (occurrence: NL)
  Receive Date: 20200303
  Receipt Date: 20200303
  Transmission Date: 20200409
  Serious: Yes (Death)
  Sender: FDA-Public Use
  Company Number: NL-ASTRAZENECA-2020SE19910

PATIENT
  Age: 4 Month
  Sex: Female

DRUGS (1)
  1. SYNAGIS [Suspect]
     Active Substance: PALIVIZUMAB
     Indication: HEART DISEASE CONGENITAL
     Dosage: 50 MG, 66 MG, MONTHLY
     Route: 030
     Dates: start: 20191210, end: 20200107

REACTIONS (1)
  - Death [Fatal]

NARRATIVE: CASE EVENT DATE: 20200117
